FAERS Safety Report 13361034 (Version 2)
Quarter: 2017Q2

REPORT INFORMATION
  Report Type: Spontaneous
  Country: US (occurrence: US)
  Receive Date: 20170322
  Receipt Date: 20170419
  Transmission Date: 20170830
  Serious: No
  Sender: FDA-Public Use
  Company Number: US-009507513-1703USA009414

PATIENT
  Sex: Female
  Weight: 46.71 kg

DRUGS (1)
  1. NEXPLANON [Suspect]
     Active Substance: ETONOGESTREL
     Indication: CONTRACEPTION
     Dosage: 1 IMPLANT
     Route: 002
     Dates: start: 2015, end: 20170323

REACTIONS (1)
  - Weight decreased [Not Recovered/Not Resolved]
